FAERS Safety Report 24816012 (Version 1)
Quarter: 2025Q1

REPORT INFORMATION
  Report Type: Spontaneous
  Country: SE (occurrence: SE)
  Receive Date: 20250107
  Receipt Date: 20250107
  Transmission Date: 20250408
  Serious: Yes (Hospitalization)
  Sender: DAIICHI
  Company Number: None

PATIENT
  Age: 93 Year
  Sex: Male

DRUGS (1)
  1. EDOXABAN TOSYLATE [Suspect]
     Active Substance: EDOXABAN TOSYLATE
     Indication: Atrial fibrillation
     Route: 065

REACTIONS (3)
  - Wound [Unknown]
  - Iron deficiency anaemia [Unknown]
  - Fall [Unknown]

NARRATIVE: CASE EVENT DATE: 20241001
